FAERS Safety Report 19799991 (Version 1)
Quarter: 2021Q3

REPORT INFORMATION
  Report Type: Spontaneous
  Country: GB (occurrence: GB)
  Receive Date: 20210907
  Receipt Date: 20210907
  Transmission Date: 20211014
  Serious: Yes (Other)
  Sender: FDA-Public Use
  Company Number: GB-CELGENEUS-GBR-20210900560

PATIENT
  Age: 55 Year
  Sex: Female

DRUGS (63)
  1. ABRAXANE [Suspect]
     Active Substance: PACLITAXEL
     Dosage: 300 MILLIGRAM
     Route: 041
     Dates: start: 20170816, end: 20170906
  2. TRASTUZUMAB EMTANSINE [Suspect]
     Active Substance: ADO-TRASTUZUMAB EMTANSINE
     Indication: BREAST CANCER
     Dosage: 240 MILLIGRAM
     Route: 042
     Dates: start: 20190427, end: 20190606
  3. APIXABAN [Concomitant]
     Active Substance: APIXABAN
     Indication: PRODUCT USED FOR UNKNOWN INDICATION
     Dosage: 2.5 MILLIGRAM, EVERY 0.5 DAY
     Route: 048
     Dates: start: 20190819, end: 20190917
  4. CEFTRIAXONE. [Concomitant]
     Active Substance: CEFTRIAXONE
     Indication: COMPLICATION ASSOCIATED WITH DEVICE
     Dosage: 2 GRAM, QD
     Route: 042
     Dates: start: 20200925, end: 20200927
  5. CEFUROXIME. [Concomitant]
     Active Substance: CEFUROXIME
     Dosage: 250 MILLIGRAM, BID
     Route: 048
     Dates: start: 20200925, end: 20201009
  6. CIPROFLOXACIN. [Concomitant]
     Active Substance: CIPROFLOXACIN
     Route: 048
     Dates: start: 20200726, end: 202008
  7. ERYTHROMYCIN. [Concomitant]
     Active Substance: ERYTHROMYCIN
     Indication: PRODUCT USED FOR UNKNOWN INDICATION
     Route: 048
     Dates: start: 20190123, end: 20190202
  8. METRONIDAZOLE. [Concomitant]
     Active Substance: METRONIDAZOLE
     Dosage: 400 MILLIGRAM, QMO
     Route: 042
     Dates: start: 20200630, end: 20200709
  9. OMEPRAZOLE. [Concomitant]
     Active Substance: OMEPRAZOLE
     Indication: DUODENAL ULCER
     Dosage: 80 MILLIGRAM
     Route: 048
     Dates: start: 20201113, end: 20210215
  10. TEICOPLANIN [Concomitant]
     Active Substance: TEICOPLANIN
     Indication: BILIARY SEPSIS
     Route: 042
     Dates: start: 20200925, end: 20200925
  11. TEICOPLANIN [Concomitant]
     Active Substance: TEICOPLANIN
     Indication: COMPLICATION ASSOCIATED WITH DEVICE
     Route: 042
     Dates: start: 20200724, end: 20200728
  12. TRANEXAMIC ACID. [Concomitant]
     Active Substance: TRANEXAMIC ACID
     Indication: PRODUCT USED FOR UNKNOWN INDICATION
     Dosage: 1 GRAM, EVERY 0.33 DAYS
     Route: 065
     Dates: start: 20201112, end: 20201113
  13. TRASTUZUMAB. [Suspect]
     Active Substance: TRASTUZUMAB
     Indication: BREAST CANCER
     Dosage: 525 MILLIGRAM
     Route: 042
     Dates: start: 20170524, end: 20170524
  14. TRASTUZUMAB EMTANSINE [Suspect]
     Active Substance: ADO-TRASTUZUMAB EMTANSINE
     Dosage: 200 MILLIGRAM, Q3WK
     Route: 042
     Dates: start: 20190627
  15. AZTREONAM. [Concomitant]
     Active Substance: AZTREONAM
     Indication: COMPLICATION ASSOCIATED WITH DEVICE
     Route: 042
     Dates: start: 20201028, end: 20201104
  16. AZTREONAM. [Concomitant]
     Active Substance: AZTREONAM
     Route: 042
     Dates: start: 20200925, end: 20200925
  17. CALCICHEW D3 FORTE [Concomitant]
     Active Substance: CALCIUM\CHOLECALCIFEROL
     Indication: PRODUCT USED FOR UNKNOWN INDICATION
     Dosage: 0.33 UINK
     Route: 048
     Dates: start: 20170525
  18. CHLORHEXIDINE GLUCONATE. [Concomitant]
     Active Substance: CHLORHEXIDINE GLUCONATE
     Indication: PRODUCT USED FOR UNKNOWN INDICATION
     Dosage: 10 MILLIGRAM
     Route: 048
     Dates: start: 20170525
  19. DOMPERIDONE [Concomitant]
     Active Substance: DOMPERIDONE
     Indication: PRODUCT USED FOR UNKNOWN INDICATION
     Dosage: 10 MILLIGRAM
     Route: 048
     Dates: start: 20170523
  20. MEROPENEM. [Concomitant]
     Active Substance: MEROPENEM
     Indication: PYREXIA
     Route: 042
     Dates: start: 20201130, end: 20201209
  21. TRASTUZUMAB. [Suspect]
     Active Substance: TRASTUZUMAB
     Dosage: 400 MILLIGRAM
     Route: 042
     Dates: start: 20170614, end: 20190327
  22. CEFUROXIME. [Concomitant]
     Active Substance: CEFUROXIME
     Indication: COMPLICATION ASSOCIATED WITH DEVICE
     Dosage: 250 MILLIGRAM, BID
     Route: 048
     Dates: start: 20201028, end: 20201111
  23. CIPROFLOXACIN. [Concomitant]
     Active Substance: CIPROFLOXACIN
     Route: 048
     Dates: start: 20200909, end: 20200916
  24. CLOBETASOL PROPIONATE. [Concomitant]
     Active Substance: CLOBETASOL PROPIONATE
     Indication: PRODUCT USED FOR UNKNOWN INDICATION
     Route: 061
     Dates: start: 20170210
  25. LANSOPRAZOLE. [Concomitant]
     Active Substance: LANSOPRAZOLE
     Indication: PRODUCT USED FOR UNKNOWN INDICATION
     Dosage: 30 MILLIGRAM, QD
     Route: 065
     Dates: start: 20190730
  26. PARACETAMOL [Concomitant]
     Active Substance: ACETAMINOPHEN
     Indication: PRODUCT USED FOR UNKNOWN INDICATION
     Route: 048
     Dates: start: 20170525
  27. ARTIFICIAL SALIVA [Concomitant]
     Indication: PRODUCT USED FOR UNKNOWN INDICATION
     Dosage: UNK, QID
     Route: 060
     Dates: start: 20170526
  28. SANDO?K [Concomitant]
     Indication: PRODUCT USED FOR UNKNOWN INDICATION
     Dosage: UNK, QID
     Route: 060
     Dates: start: 20170525
  29. TINZAPARIN [Concomitant]
     Active Substance: TINZAPARIN
     Indication: PRODUCT USED FOR UNKNOWN INDICATION
     Dosage: 12000 UNIT, QD
     Route: 058
     Dates: start: 20170703
  30. VITAMIN K [Concomitant]
     Active Substance: PHYTONADIONE
     Indication: DUODENAL ULCER
     Dosage: 10 MILLIGRAM
     Route: 042
     Dates: start: 20201112, end: 20201113
  31. ZOLEDRONIC ACID [Concomitant]
     Active Substance: ZOLEDRONIC ACID
     Indication: PRODUCT USED FOR UNKNOWN INDICATION
     Dosage: 4 MILLIGRAM, EVERY 3?4 WEEKS
     Route: 042
     Dates: start: 20170525
  32. ERTAPENEM. [Concomitant]
     Active Substance: ERTAPENEM SODIUM
     Indication: BILIARY SEPSIS
     Route: 042
     Dates: start: 20200501, end: 20200502
  33. MEROPENEM. [Concomitant]
     Active Substance: MEROPENEM
     Indication: ABDOMINAL PAIN
     Dosage: 2 GRAM
     Route: 042
     Dates: start: 20200502, end: 20210515
  34. TINZAPARIN [Concomitant]
     Active Substance: TINZAPARIN
     Dosage: 4500 UNIT, QD
     Route: 058
     Dates: start: 20190916
  35. VANCOMYCIN [Concomitant]
     Active Substance: VANCOMYCIN
     Dosage: 500 MILLIGRAM, QID
     Route: 048
     Dates: start: 20201104, end: 20201113
  36. TRASTUZUMAB. [Suspect]
     Active Substance: TRASTUZUMAB
     Dosage: 378 MILLIGRAM
     Route: 042
     Dates: start: 20180506, end: 20190327
  37. CIPROFLOXACIN. [Concomitant]
     Active Substance: CIPROFLOXACIN
     Indication: PYREXIA
     Route: 048
     Dates: start: 20200823, end: 20200828
  38. ERTAPENEM. [Concomitant]
     Active Substance: ERTAPENEM SODIUM
     Indication: CLOSTRIDIUM DIFFICILE INFECTION
     Route: 042
     Dates: start: 20201104, end: 20201111
  39. PERTUZUMAB. [Suspect]
     Active Substance: PERTUZUMAB
     Dosage: 840 MILLIGRAM
     Route: 042
     Dates: start: 20170524, end: 20170524
  40. TRASTUZUMAB EMTANSINE [Suspect]
     Active Substance: ADO-TRASTUZUMAB EMTANSINE
     Dosage: 160 MILLIGRAM
     Route: 042
     Dates: start: 20190829
  41. AMIKACIN. [Concomitant]
     Active Substance: AMIKACIN
     Indication: BILIARY SEPSIS
     Route: 042
     Dates: start: 20200504, end: 20200504
  42. AMITRIPTYLINE HYDROCHLORIDE. [Concomitant]
     Active Substance: AMITRIPTYLINE HYDROCHLORIDE
     Indication: DEPRESSED MOOD
     Dosage: 5 MILLIGRAM, QD
     Route: 048
     Dates: start: 20190827
  43. CIPROFLOXACIN. [Concomitant]
     Active Substance: CIPROFLOXACIN
     Indication: ABDOMINAL PAIN UPPER
     Route: 048
     Dates: start: 20200707, end: 202007
  44. IKERVIS [Concomitant]
     Active Substance: CYCLOSPORINE
     Indication: PRODUCT USED FOR UNKNOWN INDICATION
     Dosage: 1 DROP (1 /12 MILLILITRE)
     Route: 065
     Dates: start: 201708
  45. VANCOMYCIN [Concomitant]
     Active Substance: VANCOMYCIN
     Indication: CLOSTRIDIUM DIFFICILE INFECTION
     Dosage: 125 MILLIGRAM, QID
     Route: 048
     Dates: start: 20201030, end: 20201104
  46. PERTUZUMAB. [Suspect]
     Active Substance: PERTUZUMAB
     Indication: BREAST CANCER
     Dosage: 420 MILLIGRAM
     Route: 042
     Dates: start: 20170614, end: 20190327
  47. DOCETAXEL. [Suspect]
     Active Substance: DOCETAXEL
     Indication: BREAST CANCER
     Dosage: 130 MILLIGRAM
     Route: 042
     Dates: start: 20170525, end: 20170525
  48. AMOXICILLIN. [Concomitant]
     Active Substance: AMOXICILLIN
     Indication: ABDOMINAL PAIN
  49. BLOOD [Concomitant]
     Active Substance: WHOLE BLOOD
     Indication: DUODENAL ULCER
     Route: 042
     Dates: start: 20201112, end: 20201112
  50. CETIRIZINE [Concomitant]
     Active Substance: CETIRIZINE HYDROCHLORIDE
     Indication: PRODUCT USED FOR UNKNOWN INDICATION
     Dosage: 10 MILLIGRAM
     Route: 048
     Dates: start: 20190313
  51. CHLORPHENAMINE [Concomitant]
     Active Substance: CHLORPHENIRAMINE MALEATE
     Indication: PRODUCT USED FOR UNKNOWN INDICATION
     Dosage: 4 MILLIGRAM
     Route: 048
     Dates: start: 20170526
  52. FUSIDIC ACID [Concomitant]
     Active Substance: FUSIDIC ACID
     Indication: PRODUCT USED FOR UNKNOWN INDICATION
     Route: 065
     Dates: start: 201905
  53. MEROPENEM. [Concomitant]
     Active Substance: MEROPENEM
     Indication: BILIARY SEPSIS
  54. METRONIDAZOLE. [Concomitant]
     Active Substance: METRONIDAZOLE
     Indication: ABDOMINAL PAIN UPPER
     Route: 042
     Dates: start: 20200909, end: 20200914
  55. ABRAXANE [Suspect]
     Active Substance: PACLITAXEL
     Indication: BREAST CANCER
     Dosage: 450 MILLIGRAM
     Route: 041
     Dates: start: 20170614, end: 20170614
  56. ABRAXANE [Suspect]
     Active Substance: PACLITAXEL
     Dosage: 375 MILLIGRAM
     Route: 041
     Dates: start: 20170705, end: 20170726
  57. AMOXICILLIN. [Concomitant]
     Active Substance: AMOXICILLIN
     Indication: PYREXIA
     Dosage: 625 MILLIGRAM, EVERY 0.33 DAY
     Route: 048
     Dates: start: 20201211, end: 20201216
  58. CEFTRIAXONE. [Concomitant]
     Active Substance: CEFTRIAXONE
     Dosage: 250 MILLIGRAM, BID
     Route: 042
     Dates: start: 20200928, end: 20201012
  59. FLUCLOXACILLIN [Concomitant]
     Active Substance: FLUCLOXACILLIN
     Indication: PRODUCT USED FOR UNKNOWN INDICATION
     Route: 048
     Dates: start: 20190122, end: 201901
  60. LOPERAMIDE [Concomitant]
     Active Substance: LOPERAMIDE
     Indication: PRODUCT USED FOR UNKNOWN INDICATION
     Dosage: 2 MILLIGRAM
     Route: 065
     Dates: start: 20170613
  61. METRONIDAZOLE. [Concomitant]
     Active Substance: METRONIDAZOLE
     Indication: CHOLECYSTITIS ACUTE
     Dosage: 400 MILLIGRAM, QMO
     Route: 042
     Dates: start: 20201106, end: 202011
  62. TEICOPLANIN [Concomitant]
     Active Substance: TEICOPLANIN
     Indication: PYREXIA
     Route: 042
     Dates: start: 20200502, end: 20200515
  63. TEICOPLANIN [Concomitant]
     Active Substance: TEICOPLANIN
     Route: 042
     Dates: start: 20201028, end: 20201104

REACTIONS (3)
  - Pustule [Not Recovered/Not Resolved]
  - Venous stenosis [Recovered/Resolved]
  - Rhinitis [Recovered/Resolved]

NARRATIVE: CASE EVENT DATE: 201902
